FAERS Safety Report 8026015-2 (Version None)
Quarter: 2012Q1

REPORT INFORMATION
  Report Type: 
  Country: None (occurrence: None)
  Receive Date: 20120105
  Receipt Date: 20111017
  Transmission Date: 20120608
  Serious: No
  Sender: FDA-Public Use
  Company Number: US-ABBOTT-11P-163-0862093-00

PATIENT
  Sex: Male
  Weight: 53.572 kg

DRUGS (4)
  1. SYNTHROID [Suspect]
     Indication: HYPOTHYROIDISM
     Dates: start: 20080101
  2. SIMVASTATIN [Concomitant]
     Indication: BLOOD CHOLESTEROL INCREASED
  3. PLAVIX [Suspect]
     Indication: CORONARY ARTERIAL STENT INSERTION
     Dates: start: 20080101
  4. REMAPRO [Concomitant]
     Indication: HYPERTENSION

REACTIONS (9)
  - HAEMORRHAGE [None]
  - CONTUSION [None]
  - SKIN DISORDER [None]
  - VEIN DISORDER [None]
  - SKIN MASS [None]
  - PRURITUS [None]
  - RASH [None]
  - SKIN DISCOLOURATION [None]
  - PARAESTHESIA [None]
